FAERS Safety Report 15674080 (Version 1)
Quarter: 2018Q4

REPORT INFORMATION
  Report Type: Spontaneous
  Country: SI (occurrence: SI)
  Receive Date: 20181129
  Receipt Date: 20181129
  Transmission Date: 20190205
  Serious: Yes (Hospitalization, Other)
  Sender: FDA-Public Use
  Company Number: SI-BAXTER-2018BAX028698

PATIENT
  Age: 57 Year
  Sex: Female

DRUGS (7)
  1. LACIPIL [Concomitant]
     Active Substance: LACIDIPINE
     Indication: PRODUCT USED FOR UNKNOWN INDICATION
     Route: 065
  2. ENDOXAN 1G PRASEK ZA RAZTOPINO ZA INFUNDIRANJE [Suspect]
     Active Substance: CYCLOPHOSPHAMIDE
     Indication: BREAST CANCER
     Dosage: 1000 MG POWDER FOR SOLUTION FOR INFUSION
     Route: 042
     Dates: start: 20180912, end: 20181030
  3. DOKSORUBICIN TEVA [Suspect]
     Active Substance: DOXORUBICIN HYDROCHLORIDE
     Indication: BREAST CANCER
     Dosage: 2MG/ML CONCENTRATE FOR SOLUTION FOR INFUSION
     Route: 042
     Dates: start: 20180912, end: 20181030
  4. TERTENSIF SR [Concomitant]
     Indication: PRODUCT USED FOR UNKNOWN INDICATION
     Route: 065
  5. INSULIN INJECTION [Concomitant]
     Active Substance: INSULIN NOS
     Indication: PRODUCT USED FOR UNKNOWN INDICATION
     Route: 065
  6. XIGDUO XR [Concomitant]
     Active Substance: DAPAGLIFLOZIN PROPANEDIOL\METFORMIN HYDROCHLORIDE
     Indication: PRODUCT USED FOR UNKNOWN INDICATION
     Dosage: 5/1000 MG, 2X1
     Route: 065
  7. MICARDIS [Concomitant]
     Active Substance: TELMISARTAN
     Indication: PRODUCT USED FOR UNKNOWN INDICATION
     Route: 065

REACTIONS (4)
  - Aphthous ulcer [Recovered/Resolved]
  - Oesophageal candidiasis [Recovered/Resolved]
  - Gastritis [Recovered/Resolved]
  - Hiatus hernia [Recovered/Resolved]

NARRATIVE: CASE EVENT DATE: 20180925
